FAERS Safety Report 20056751 (Version 1)
Quarter: 2021Q4

REPORT INFORMATION
  Report Type: Spontaneous
  Country: US (occurrence: US)
  Receive Date: 20211111
  Receipt Date: 20211111
  Transmission Date: 20220303
  Serious: No
  Sender: FDA-Public Use
  Company Number: US-BRISTOL-MYERS SQUIBB COMPANY-BMS-2021-118442

PATIENT
  Age: 48 Year
  Sex: Female

DRUGS (5)
  1. ORENCIA [Suspect]
     Active Substance: ABATACEPT
     Indication: Psoriatic arthropathy
     Dosage: 125 MILLIGRAM, QWK
     Route: 065
     Dates: start: 20210216
  2. ORENCIA [Suspect]
     Active Substance: ABATACEPT
     Indication: Psoriatic arthropathy
     Dosage: 125 MILLIGRAM, QWK
     Route: 065
     Dates: start: 20210216
  3. ORENCIA [Suspect]
     Active Substance: ABATACEPT
     Indication: Psoriasis
  4. ORENCIA [Suspect]
     Active Substance: ABATACEPT
     Indication: Psoriasis
  5. TALTZ [Suspect]
     Active Substance: IXEKIZUMAB
     Indication: Product used for unknown indication
     Dosage: UNK
     Route: 065

REACTIONS (3)
  - Pruritus [Unknown]
  - Burning sensation [Unknown]
  - Pain [Unknown]
